FAERS Safety Report 10437682 (Version 1)
Quarter: 2014Q3

REPORT INFORMATION
  Report Type: Spontaneous
  Country: US (occurrence: US)
  Receive Date: 20140908
  Receipt Date: 20140908
  Transmission Date: 20150326
  Serious: No
  Sender: FDA-Public Use
  Company Number: US-BRISTOL-MYERS SQUIBB COMPANY-21001904

PATIENT
  Age: 44 Year
  Sex: Female

DRUGS (8)
  1. DOXEPIN [Concomitant]
     Active Substance: DOXEPIN
  2. XANAX [Concomitant]
     Active Substance: ALPRAZOLAM
  3. BENADRYL [Concomitant]
     Active Substance: DIPHENHYDRAMINE HYDROCHLORIDE
  4. ABILIFY [Suspect]
     Active Substance: ARIPIPRAZOLE
     Indication: SCHIZOPHRENIA
     Dates: start: 201404
  5. LAMICTAL [Concomitant]
     Active Substance: LAMOTRIGINE
  6. LITHIUM [Concomitant]
     Active Substance: LITHIUM CARBONATE
  7. LYRICA [Concomitant]
     Active Substance: PREGABALIN
  8. PERPHENAZINE. [Concomitant]
     Active Substance: PERPHENAZINE

REACTIONS (1)
  - Blood glucose increased [Recovering/Resolving]

NARRATIVE: CASE EVENT DATE: 201405
